FAERS Safety Report 9995207 (Version 1)
Quarter: 2014Q1

REPORT INFORMATION
  Report Type: Spontaneous
  Country: US (occurrence: None)
  Receive Date: 20140307
  Receipt Date: 20140307
  Transmission Date: 20141002
  Serious: Yes (Other)
  Sender: FDA-Public Use
  Company Number: None

PATIENT
  Age: 62 Year
  Sex: Male

DRUGS (5)
  1. CLOPIDOGREL [Suspect]
     Indication: THROMBOSIS PROPHYLAXIS
     Route: 048
     Dates: start: 20140128
  2. VITAMIN D3 [Suspect]
  3. CENTRUM SILVER [Concomitant]
  4. FLAXSEED OIL [Concomitant]
  5. METAMUCIL [Concomitant]

REACTIONS (1)
  - Alopecia [None]
